FAERS Safety Report 8329074-2 (Version None)
Quarter: 2012Q2

REPORT INFORMATION
  Report Type: 
  Country: None (occurrence: None)
  Receive Date: 20120502
  Receipt Date: 20120425
  Transmission Date: 20120825
  Serious: Yes (Other)
  Sender: FDA-Public Use
  Company Number: US-UCBSA-046646

PATIENT
  Age: 80 Year
  Sex: Female
  Weight: 91.63 kg

DRUGS (16)
  1. IMMUNE GLOBULIN INTRAVENOUS (HUMAN) [Concomitant]
     Dates: start: 20101001, end: 20110810
  2. REQUIP [Concomitant]
     Indication: PARKINSON'S DISEASE
     Dates: start: 20101005
  3. ASPIRIN [Concomitant]
     Indication: CARDIAC FAILURE CONGESTIVE
     Dates: start: 20000101
  4. TOPROL-XL [Concomitant]
     Indication: HYPERTENSION
     Dates: start: 20000101
  5. ASPIRIN [Concomitant]
     Indication: HYPERTENSION
     Dates: start: 20000101
  6. LISINOPRIL [Concomitant]
     Indication: CARDIAC FAILURE CONGESTIVE
     Dosage: 20 MG, QD, BID
     Dates: start: 20000101
  7. OMEPRAZOLE [Concomitant]
     Indication: GASTROOESOPHAGEAL REFLUX DISEASE
     Dates: start: 20110810
  8. ROTIGOTINE [Suspect]
     Indication: PARKINSON'S DISEASE
     Route: 062
     Dates: start: 20070901
  9. IMMUNE GLOBULIN INTRAVENOUS (HUMAN) [Concomitant]
     Indication: HYPERGAMMAGLOBULINAEMIA
     Dates: start: 20110811
  10. SINEMET [Concomitant]
     Indication: PARKINSON'S DISEASE
     Dosage: 25/100, 50/200 MG, QHS
     Dates: start: 19990101
  11. VERAPAMIL [Concomitant]
     Indication: HYPERTENSION
     Dates: start: 20060101
  12. SIMVASTATIN [Concomitant]
     Indication: HYPERCHOLESTEROLAEMIA
     Dates: start: 20060101
  13. TOPROL-XL [Concomitant]
     Indication: CARDIAC FAILURE CONGESTIVE
     Dates: start: 20000101
  14. LISINOPRIL [Concomitant]
     Indication: HYPERTENSION
     Dosage: 20 MG, QD, BID
     Dates: start: 20000101
  15. ASPIRIN [Concomitant]
     Indication: HYPERTENSION
     Dates: start: 20000101
  16. ASPIRIN [Concomitant]
     Indication: CARDIAC FAILURE CONGESTIVE
     Dates: start: 20000101

REACTIONS (1)
  - MALIGNANT MELANOMA [None]
